FAERS Safety Report 16286566 (Version 3)
Quarter: 2019Q4

REPORT INFORMATION
  Report Type: Spontaneous
  Country: US (occurrence: US)
  Receive Date: 20190508
  Receipt Date: 20191014
  Transmission Date: 20200122
  Serious: No
  Sender: FDA-Public Use
  Company Number: US-PFIZER INC-2019195331

PATIENT
  Age: 74 Year
  Sex: Female
  Weight: 61.22 kg

DRUGS (7)
  1. PRILOSEC [Concomitant]
     Active Substance: OMEPRAZOLE MAGNESIUM
     Dosage: 20 MG, UNK
  2. OCUVITE [ASCORBIC ACID;RETINOL;TOCOPHEROL] [Concomitant]
     Dosage: EYE HEALTH 50-15-4
  3. BOSULIF [Suspect]
     Active Substance: BOSUTINIB MONOHYDRATE
     Dosage: UNK, DAILY [200MG-400MG; TAKE 2 TO 4 TABLETS DAILY]
     Route: 048
     Dates: start: 20190327
  4. BOSULIF [Suspect]
     Active Substance: BOSUTINIB MONOHYDRATE
     Indication: CHRONIC MYELOID LEUKAEMIA
     Dosage: 400 MG, DAILY (1TAB DAILY)
     Route: 048
     Dates: start: 20190327
  5. BOSULIF [Suspect]
     Active Substance: BOSUTINIB MONOHYDRATE
     Dosage: 200 MG, DAILY (1TAB DAILY)
     Route: 048
     Dates: start: 20190415
  6. CALCIUM CARBONATE. [Concomitant]
     Active Substance: CALCIUM CARBONATE
     Dosage: UNK
  7. TYLENOL [Concomitant]
     Active Substance: ACETAMINOPHEN
     Dosage: 325 MG, UNK

REACTIONS (7)
  - Diarrhoea [Unknown]
  - Joint swelling [Recovering/Resolving]
  - Nausea [Unknown]
  - Dry mouth [Unknown]
  - Feeling hot [Recovering/Resolving]
  - Arthralgia [Recovering/Resolving]
  - Limb discomfort [Unknown]
